FAERS Safety Report 9378483 (Version 2)
Quarter: 2013Q3

REPORT INFORMATION
  Report Type: Spontaneous
  Country: CO (occurrence: CO)
  Receive Date: 20130702
  Receipt Date: 20130710
  Transmission Date: 20140515
  Serious: No
  Sender: FDA-Public Use
  Company Number: CO-AMGEN-COLSP2013045907

PATIENT
  Age: 53 Year
  Sex: Female

DRUGS (6)
  1. ENBREL [Suspect]
     Indication: RHEUMATOID ARTHRITIS
     Dosage: 50 MG, WEEKLY
     Route: 058
     Dates: start: 20130601
  2. PREDNISOLONE [Concomitant]
     Indication: RHEUMATOID ARTHRITIS
     Dosage: 5 MG, 2X/DAY
     Route: 048
     Dates: start: 2009
  3. SULFASALAZINE [Concomitant]
     Indication: RHEUMATOID ARTHRITIS
     Dosage: 500 MG, 3X/DAY
     Route: 048
     Dates: start: 2010
  4. ARAVA [Concomitant]
     Indication: RHEUMATOID ARTHRITIS
     Dosage: 20 MG, 1X/DAY
     Route: 048
     Dates: start: 2010
  5. ALENDRONATE SODIUM [Concomitant]
     Indication: OSTEOPOROSIS
     Dosage: 70 MG, WEEKLY
     Route: 048
     Dates: start: 2012
  6. CALCIUM WITH VITAMIN D             /00944201/ [Concomitant]
     Indication: OSTEOPOROSIS
     Dosage: UNK
     Route: 048
     Dates: start: 2012

REACTIONS (8)
  - Nausea [Recovered/Resolved]
  - Chills [Recovered/Resolved]
  - Coagulopathy [Unknown]
  - Product quality issue [Unknown]
  - Dizziness [Recovered/Resolved]
  - Nervousness [Recovered/Resolved]
  - Injection site haematoma [Not Recovered/Not Resolved]
  - Injection site haemorrhage [Recovered/Resolved]
